FAERS Safety Report 6054126-X (Version None)
Quarter: 2009Q1

REPORT INFORMATION
  Report Type: 
  Country: None (occurrence: None)
  Receive Date: 20090127
  Receipt Date: 20090113
  Transmission Date: 20090719
  Serious: Yes (Hospitalization, Other)
  Sender: FDA-Public Use
  Company Number: FR-ELI_LILLY_AND_COMPANY-FR200812001854

PATIENT
  Age: 74 Year
  Sex: Female
  Weight: 68 kg

DRUGS (6)
  1. FORTEO [Suspect]
     Indication: OSTEOPOROSIS
     Dosage: 20 UG, DAILY (1/D)
     Route: 065
     Dates: start: 20080130
  2. ACETAMINOPHEN [Concomitant]
     Dosage: UNK, UNKNOWN
     Route: 065
     Dates: start: 20081024
  3. BIOCARDE [Concomitant]
     Dosage: UNK, UNKNOWN
     Route: 065
  4. SPASMAG [Concomitant]
     Dosage: UNK, UNKNOWN
     Route: 048
  5. CHONDROSULF [Concomitant]
     Dosage: UNK, UNKNOWN
     Route: 065
  6. VITAMIN D3 [Concomitant]
     Dosage: UNK, UNKNOWN
     Route: 065

REACTIONS (3)
  - FALL [None]
  - HAEMOGLOBIN DECREASED [None]
  - UPPER LIMB FRACTURE [None]
